FAERS Safety Report 10012366 (Version 2)
Quarter: 2014Q2

REPORT INFORMATION
  Report Type: Spontaneous
  Country: US (occurrence: US)
  Receive Date: 20140312
  Receipt Date: 20140409
  Transmission Date: 20141212
  Serious: No
  Sender: FDA-Public Use
  Company Number: US-PFIZER INC-2014069013

PATIENT
  Age: 43 Year
  Sex: Female

DRUGS (15)
  1. LYRICA [Suspect]
     Indication: SPINAL OSTEOARTHRITIS
     Dosage: 150 MG, 3X/DAY
     Route: 048
  2. LYRICA [Suspect]
     Indication: LUMBAR RADICULOPATHY
     Dosage: 100 MG, DAILY
     Route: 048
  3. LYRICA [Suspect]
     Indication: POST LAMINECTOMY SYNDROME
  4. SOMA [Concomitant]
     Indication: SPINAL OSTEOARTHRITIS
     Dosage: 350 MG, AS NEEDED (AS NEEDED BID)
     Route: 048
  5. SOMA [Concomitant]
     Indication: LUMBAR RADICULOPATHY
  6. SOMA [Concomitant]
     Indication: POST LAMINECTOMY SYNDROME
  7. DICLOFENAC SODIUM [Concomitant]
     Indication: SPINAL OSTEOARTHRITIS
     Dosage: 75 MG, 2X/DAY
     Route: 048
  8. DICLOFENAC SODIUM [Concomitant]
     Indication: LUMBAR RADICULOPATHY
  9. DICLOFENAC SODIUM [Concomitant]
     Indication: POST LAMINECTOMY SYNDROME
  10. LORTAB [Concomitant]
     Indication: SPINAL OSTEOARTHRITIS
     Dosage: 1 DF, 3X/DAY (5 - 500MG TABLET)
  11. LORTAB [Concomitant]
     Indication: LUMBAR RADICULOPATHY
  12. LORTAB [Concomitant]
     Indication: POST LAMINECTOMY SYNDROME
  13. NORCO [Concomitant]
     Indication: SPINAL OSTEOARTHRITIS
     Dosage: 5 MG HYDROCODONE BITARTRATE, 325 MG PARACETAMOL (1 TABLET AS NEEDED EVERY 8 HRS)
     Route: 048
  14. NORCO [Concomitant]
     Indication: LUMBAR RADICULOPATHY
  15. NORCO [Concomitant]
     Indication: POST LAMINECTOMY SYNDROME

REACTIONS (3)
  - Feeling abnormal [Unknown]
  - Balance disorder [Unknown]
  - Sedation [Unknown]
